FAERS Safety Report 15721512 (Version 1)
Quarter: 2018Q4

REPORT INFORMATION
  Report Type: Spontaneous
  Country: CN (occurrence: CN)
  Receive Date: 20181214
  Receipt Date: 20181214
  Transmission Date: 20190205
  Serious: Yes (Other)
  Sender: FDA-Public Use
  Company Number: CN-ROCHE-2220770

PATIENT
  Age: 55 Year
  Sex: Female
  Weight: 52 kg

DRUGS (10)
  1. XELODA [Suspect]
     Active Substance: CAPECITABINE
     Indication: METASTASES TO LIVER
  2. ALBUMIN [Concomitant]
     Active Substance: ALBUMIN HUMAN
     Indication: BREAST CANCER
  3. PACLITAXEL. [Concomitant]
     Active Substance: PACLITAXEL
     Indication: BREAST CANCER
  4. PACLITAXEL. [Concomitant]
     Active Substance: PACLITAXEL
     Indication: METASTASES TO LIVER
     Route: 065
     Dates: start: 20181124
  5. DOCETAXEL. [Concomitant]
     Active Substance: DOCETAXEL
     Indication: METASTASES TO LIVER
  6. DOCETAXEL. [Concomitant]
     Active Substance: DOCETAXEL
     Indication: BREAST CANCER
  7. TRASTUZUMAB. [Suspect]
     Active Substance: TRASTUZUMAB
     Indication: BREAST CANCER
  8. ALBUMIN [Concomitant]
     Active Substance: ALBUMIN HUMAN
     Indication: METASTASES TO LIVER
     Route: 065
     Dates: start: 20181124
  9. TRASTUZUMAB. [Suspect]
     Active Substance: TRASTUZUMAB
     Indication: METASTASES TO LIVER
     Route: 041
     Dates: start: 20181124
  10. XELODA [Suspect]
     Active Substance: CAPECITABINE
     Indication: HER-2 POSITIVE BREAST CANCER
     Route: 048
     Dates: start: 20181124

REACTIONS (3)
  - Platelet count decreased [Recovering/Resolving]
  - Gingival bleeding [Recovering/Resolving]
  - White blood cell count decreased [Unknown]

NARRATIVE: CASE EVENT DATE: 20181124
